FAERS Safety Report 15551023 (Version 1)
Quarter: 2018Q4

REPORT INFORMATION
  Report Type: Spontaneous
  Country: CA (occurrence: CA)
  Receive Date: 20181025
  Receipt Date: 20181025
  Transmission Date: 20190205
  Serious: Yes (Hospitalization)
  Sender: FDA-Public Use
  Company Number: CA-JNJFOC-20181029814

PATIENT
  Age: 24 Year
  Sex: Female

DRUGS (2)
  1. TRAMACET [Suspect]
     Active Substance: ACETAMINOPHEN\TRAMADOL
     Indication: PAIN
     Route: 048
  2. SERTRALINE [Concomitant]
     Active Substance: SERTRALINE HYDROCHLORIDE
     Route: 065

REACTIONS (5)
  - Muscle twitching [Unknown]
  - Toxicity to various agents [Unknown]
  - Tremor [Unknown]
  - Abnormal dreams [Unknown]
  - Tachycardia [Unknown]
